FAERS Safety Report 12978087 (Version 3)
Quarter: 2016Q4

REPORT INFORMATION
  Report Type: Spontaneous
  Country: US (occurrence: US)
  Receive Date: 20161128
  Receipt Date: 20161228
  Transmission Date: 20170207
  Serious: Yes (Other)
  Sender: FDA-Public Use
  Company Number: US-PFIZER INC-2016538753

PATIENT
  Age: 24 Year
  Sex: Male

DRUGS (2)
  1. BENEFIX [Suspect]
     Active Substance: COAGULATION FACTOR IX RECOMBINANT HUMAN\ISOPROPYL ALCOHOL
     Indication: FACTOR IX DEFICIENCY
     Dosage: UNK, AS NEEDED ( MONTHLY DOSE 4000 UNITS; 10 % 1 PRN BLEED)
     Route: 042
  2. BENEFIX [Suspect]
     Active Substance: COAGULATION FACTOR IX RECOMBINANT HUMAN\ISOPROPYL ALCOHOL
     Dosage: UNK UNK, 2X/WEEK (BIW)

REACTIONS (4)
  - Urethral haemorrhage [Recovering/Resolving]
  - Haemorrhage [Unknown]
  - Underdose [Unknown]
  - Coagulation factor IX level decreased [Unknown]
